FAERS Safety Report 18953861 (Version 1)
Quarter: 2021Q1

REPORT INFORMATION
  Report Type: Spontaneous
  Country: US (occurrence: US)
  Receive Date: 20210301
  Receipt Date: 20210301
  Transmission Date: 20210420
  Serious: Yes (Death, Hospitalization)
  Sender: FDA-Public Use
  Company Number: US-AMNEAL PHARMACEUTICALS-2021-AMRX-00636

PATIENT
  Sex: Male

DRUGS (8)
  1. ETOPOSIDE. [Suspect]
     Active Substance: ETOPOSIDE
     Dosage: UNK
     Route: 037
  2. CELECOXIB. [Suspect]
     Active Substance: CELECOXIB
     Indication: MEDULLOBLASTOMA RECURRENT
     Dosage: UNK
     Route: 048
  3. THALIDOMIDE [Suspect]
     Active Substance: THALIDOMIDE
     Indication: MEDULLOBLASTOMA RECURRENT
     Dosage: UNK
     Route: 048
  4. FENOFIBRATE. [Suspect]
     Active Substance: FENOFIBRATE
     Indication: MEDULLOBLASTOMA RECURRENT
     Dosage: UNK
     Route: 048
  5. BEVACIZUMAB. [Suspect]
     Active Substance: BEVACIZUMAB
     Indication: MEDULLOBLASTOMA RECURRENT
     Dosage: UNK
     Route: 065
  6. CYTARABINE. [Suspect]
     Active Substance: CYTARABINE
     Indication: MEDULLOBLASTOMA RECURRENT
     Dosage: UNK
     Route: 037
  7. ETOPOSIDE. [Suspect]
     Active Substance: ETOPOSIDE
     Indication: MEDULLOBLASTOMA RECURRENT
     Dosage: UNK
     Route: 048
  8. CYCLOPHOSPHAMIDE. [Suspect]
     Active Substance: CYCLOPHOSPHAMIDE
     Indication: MEDULLOBLASTOMA RECURRENT
     Dosage: UNK
     Route: 048

REACTIONS (4)
  - Respiratory failure [Fatal]
  - Pulmonary toxicity [Unknown]
  - Cough [Unknown]
  - Viral infection [Unknown]
